FAERS Safety Report 7454447-X (Version None)
Quarter: 2011Q2

REPORT INFORMATION
  Report Type: 
  Country: None (occurrence: None)
  Receive Date: 20110503
  Receipt Date: 20110427
  Transmission Date: 20111010
  Serious: Yes (Other)
  Sender: FDA-Public Use
  Company Number: JP-ASTELLAS-2011JP002453

PATIENT
  Sex: Female

DRUGS (9)
  1. LOXONIN [Concomitant]
     Dosage: UNK
     Route: 065
  2. MUGS [Concomitant]
     Dosage: UNK
     Route: 065
  3. VESICARE [Suspect]
     Indication: NOCTURIA
  4. VESICARE [Suspect]
     Indication: HYPERTONIC BLADDER
     Dosage: 2.5 MG, UID/QD
     Route: 048
     Dates: start: 20100305, end: 20100325
  5. CLARITIN [Concomitant]
     Dosage: UNK
     Route: 065
  6. NORVASC [Concomitant]
     Dosage: UNK
     Route: 065
  7. MECOBALAMIN [Concomitant]
     Dosage: UNK
     Route: 065
  8. PRORENAL [Concomitant]
     Dosage: UNK
     Route: 065
  9. LEXOTAN [Concomitant]
     Dosage: UNK
     Route: 065

REACTIONS (1)
  - DELIRIUM [None]
